FAERS Safety Report 17675900 (Version 2)
Quarter: 2020Q2

REPORT INFORMATION
  Report Type: Spontaneous
  Country: PE (occurrence: PE)
  Receive Date: 20200416
  Receipt Date: 20200417
  Transmission Date: 20200714
  Serious: Yes (Hospitalization, Other)
  Sender: FDA-Public Use
  Company Number: PE-ABBVIE-20K-127-3362279-00

PATIENT
  Age: 65 Year
  Sex: Male

DRUGS (7)
  1. PHENYTOIN. [Suspect]
     Active Substance: PHENYTOIN
     Indication: HYPERGLYCAEMIC SEIZURE
     Route: 065
  2. CLONAZEPAM. [Suspect]
     Active Substance: CLONAZEPAM
     Indication: HYPERGLYCAEMIC SEIZURE
     Route: 065
  3. CLONAZEPAM. [Suspect]
     Active Substance: CLONAZEPAM
     Dosage: 10 MG C / 12 H
     Route: 065
  4. GLIBENCLAMIDE [Concomitant]
     Active Substance: GLYBURIDE
     Indication: TYPE 2 DIABETES MELLITUS
  5. VALPROIC ACID. [Suspect]
     Active Substance: VALPROIC ACID
     Indication: HYPERGLYCAEMIC SEIZURE
     Route: 065
  6. METFORMIN [Concomitant]
     Active Substance: METFORMIN HYDROCHLORIDE
     Indication: TYPE 2 DIABETES MELLITUS
  7. PHENYTOIN. [Suspect]
     Active Substance: PHENYTOIN
     Dosage: 100 MG C / 8 HOURS
     Route: 065

REACTIONS (4)
  - Altered state of consciousness [Recovered/Resolved]
  - Hyperglycaemic seizure [Recovered/Resolved]
  - Speech disorder [Recovered/Resolved]
  - Therapeutic product effect incomplete [Unknown]
